FAERS Safety Report 5441996-9 (Version None)
Quarter: 2007Q3

REPORT INFORMATION
  Report Type: 
  Country: None (occurrence: None)
  Receive Date: 20070904
  Receipt Date: 20070828
  Transmission Date: 20080115
  Serious: Yes (Other)
  Sender: FDA-Public Use
  Company Number: B0485508A

PATIENT
  Age: 22 Year
  Sex: Female

DRUGS (2)
  1. AROPAX [Suspect]
     Indication: DRUG USE FOR UNKNOWN INDICATION
     Dates: start: 20020101
  2. XANAX [Concomitant]

REACTIONS (9)
  - DEPENDENCE [None]
  - DIARRHOEA [None]
  - DRUG WITHDRAWAL SYNDROME [None]
  - HEADACHE [None]
  - NAUSEA [None]
  - SENSORY DISTURBANCE [None]
  - VERTIGO [None]
  - VOMITING [None]
  - WEIGHT INCREASED [None]
